FAERS Safety Report 7440564-7 (Version None)
Quarter: 2011Q2

REPORT INFORMATION
  Report Type: 
  Country: None (occurrence: None)
  Receive Date: 20110427
  Receipt Date: 20110422
  Transmission Date: 20111010
  Serious: Yes (Congenital Anomaly)
  Sender: FDA-Public Use
  Company Number: A0924478A

PATIENT
  Sex: Male

DRUGS (12)
  1. MACROBID [Concomitant]
     Route: 064
  2. PRENATAL VITAMINS [Concomitant]
     Route: 064
  3. LOVENOX [Concomitant]
     Route: 064
  4. PROTONIX [Concomitant]
     Route: 064
  5. PAXIL [Suspect]
     Route: 064
  6. LITHIUM CARBONATE [Concomitant]
     Route: 064
  7. ALDACTONE [Concomitant]
     Route: 064
  8. ZITHROMAX [Concomitant]
     Route: 064
  9. SYNTHROID [Concomitant]
     Route: 064
  10. COUMADIN [Concomitant]
     Route: 064
  11. AMOXIL [Concomitant]
     Route: 064
  12. NEXIUM [Concomitant]
     Route: 064

REACTIONS (3)
  - DRUG EXPOSURE DURING PREGNANCY [None]
  - CARDIAC MURMUR [None]
  - FAILURE TO THRIVE [None]
